FAERS Safety Report 8296139-3 (Version None)
Quarter: 2012Q2

REPORT INFORMATION
  Report Type: 
  Country: None (occurrence: None)
  Receive Date: 20120418
  Receipt Date: 20120413
  Transmission Date: 20120825
  Serious: Yes (Hospitalization)
  Sender: FDA-Public Use
  Company Number: JP-GLAXOSMITHKLINE-B0781555A

PATIENT
  Sex: Male

DRUGS (4)
  1. LAMICTAL [Suspect]
     Indication: PRODUCT USED FOR UNKNOWN INDICATION
     Route: 048
     Dates: start: 20120123, end: 20120201
  2. OLOPATADINE HCL [Concomitant]
     Dosage: 10MG PER DAY
     Route: 048
     Dates: start: 20120210
  3. FAMOTIDINE [Concomitant]
     Dosage: 40MG PER DAY
     Route: 048
     Dates: start: 20120210
  4. LULLAN [Concomitant]
     Dosage: 32MG PER DAY
     Route: 048

REACTIONS (9)
  - OCULAR HYPERAEMIA [None]
  - PYREXIA [None]
  - GENERALISED ERYTHEMA [None]
  - RASH [None]
  - STEVENS-JOHNSON SYNDROME [None]
  - ERYTHEMA OF EYELID [None]
  - LIP EROSION [None]
  - ORAL MUCOSA EROSION [None]
  - EYE DISCHARGE [None]
